FAERS Safety Report 13882905 (Version 2)
Quarter: 2017Q3

REPORT INFORMATION
  Report Type: Spontaneous
  Country: US (occurrence: US)
  Receive Date: 20170818
  Receipt Date: 20170830
  Transmission Date: 20171127
  Serious: No
  Sender: FDA-Public Use
  Company Number: US-PFIZER INC-2017354597

PATIENT
  Sex: Female

DRUGS (4)
  1. EPINEPHRINE. [Suspect]
     Active Substance: EPINEPHRINE
     Dosage: 0.3MG/0.3ML
  2. LYRICA [Suspect]
     Active Substance: PREGABALIN
     Dosage: 25 MG, 4X/DAY
  3. AMLODIPINE BESILATE [Suspect]
     Active Substance: AMLODIPINE BESYLATE
     Dosage: 5 MG, UNK
  4. CELEBREX [Suspect]
     Active Substance: CELECOXIB
     Dosage: 200 MG, 2X/DAY

REACTIONS (32)
  - Dry mouth [Unknown]
  - Back pain [Unknown]
  - Dizziness [Unknown]
  - Headache [Unknown]
  - Arthralgia [Unknown]
  - Joint swelling [Unknown]
  - Joint crepitation [Unknown]
  - Muscular weakness [Unknown]
  - Arthropathy [Unknown]
  - Night sweats [Unknown]
  - Cardiac murmur [Unknown]
  - Myalgia [Unknown]
  - Asthenia [Unknown]
  - Migraine [Unknown]
  - Sleep disorder [Unknown]
  - Anxiety [Unknown]
  - Gastrooesophageal reflux disease [Unknown]
  - Dizziness postural [Unknown]
  - Peripheral swelling [Unknown]
  - Tenderness [Unknown]
  - Tremor [Unknown]
  - Fatigue [Unknown]
  - Motor dysfunction [Unknown]
  - Hypoaesthesia [Unknown]
  - Poor quality sleep [Unknown]
  - Contusion [Unknown]
  - Joint range of motion decreased [Unknown]
  - Gait disturbance [Unknown]
  - Depression [Unknown]
  - Hypersensitivity [Unknown]
  - Oedema [Unknown]
  - Kyphosis [Unknown]
